FAERS Safety Report 7134428-6 (Version None)
Quarter: 2010Q4

REPORT INFORMATION
  Report Type: 
  Country: None (occurrence: None)
  Receive Date: 20101203
  Receipt Date: 20101129
  Transmission Date: 20110411
  Serious: Yes (Death)
  Sender: FDA-Public Use
  Company Number: PHHY2010JP81118

PATIENT
  Sex: Male
  Weight: 48 kg

DRUGS (4)
  1. DIOVAN [Suspect]
     Indication: HYPERTENSION
     Dosage: 80 MG, QD
     Route: 048
     Dates: start: 20081017, end: 20081113
  2. DIOVAN [Suspect]
     Dosage: 160 MG, QD
     Route: 048
     Dates: start: 20081114
  3. CALBLOCK [Concomitant]
     Indication: HYPERTENSION
     Dosage: 16 MG
     Route: 048
     Dates: start: 20081114
  4. ATENOLOL [Concomitant]
     Indication: HYPERTENSION
     Dosage: 50 MG
     Route: 048
     Dates: start: 20090401

REACTIONS (2)
  - BRAIN NEOPLASM [None]
  - LUNG NEOPLASM MALIGNANT [None]
